FAERS Safety Report 24846649 (Version 1)
Quarter: 2025Q1

REPORT INFORMATION
  Report Type: Spontaneous
  Country: US (occurrence: US)
  Receive Date: 20250115
  Receipt Date: 20250115
  Transmission Date: 20250408
  Serious: No
  Sender: FERRING
  Company Number: US-FERRINGPH-2024FE03842

PATIENT
  Age: 76 Year
  Sex: Female
  Weight: 70.748 kg

DRUGS (1)
  1. CLENPIQ [Suspect]
     Active Substance: ANHYDROUS CITRIC ACID\MAGNESIUM OXIDE\SODIUM PICOSULFATE
     Indication: Bowel preparation
     Route: 065
     Dates: start: 20230708, end: 20240709

REACTIONS (3)
  - Therapeutic product effect delayed [Recovered/Resolved]
  - Drug ineffective [Unknown]
  - Wrong schedule [Unknown]

NARRATIVE: CASE EVENT DATE: 20240708
